FAERS Safety Report 4517068-4 (Version None)
Quarter: 2004Q4

REPORT INFORMATION
  Report Type: 
  Country: None (occurrence: None)
  Receive Date: 20041130
  Receipt Date: 20041119
  Transmission Date: 20050328
  Serious: Yes (Disabling)
  Sender: FDA-Public Use
  Company Number: 2004097398

PATIENT

DRUGS (1)
  1. SOMATROPIN (SOMATROPIN) [Suspect]
     Indication: ILL-DEFINED DISORDER
     Dosage: SUBCUTANEOUS
     Route: 058

REACTIONS (3)
  - HEADACHE [None]
  - RETINAL DETACHMENT [None]
  - VISUAL DISTURBANCE [None]
